FAERS Safety Report 9961640 (Version 8)
Quarter: 2014Q3

REPORT INFORMATION
  Report Type: Report from Study
  Country: CN (occurrence: CN)
  Receive Date: 20140305
  Receipt Date: 20140820
  Transmission Date: 20150326
  Serious: Yes (Hospitalization, Disabling)
  Sender: FDA-Public Use
  Company Number: PHHO2014CN001000

PATIENT
  Age: 53 Year
  Sex: Female
  Weight: 66 kg

DRUGS (4)
  1. AFINITOR [Suspect]
     Active Substance: EVEROLIMUS
     Indication: BREAST CANCER METASTATIC
     Dosage: CODE NOT BROKEN
     Dates: start: 20110119, end: 20131208
  2. AFINITOR [Suspect]
     Active Substance: EVEROLIMUS
     Dosage: CODE NOT BROKEN
     Dates: start: 20131213
  3. COMPARATOR PACLITAXEL [Suspect]
     Active Substance: PACLITAXEL
     Indication: BREAST CANCER METASTATIC
     Dosage: 127 MG, QD
     Route: 042
     Dates: start: 20110119, end: 20110823
  4. COMPARATOR TRASTUZUMAB [Suspect]
     Active Substance: TRASTUZUMAB
     Indication: BREAST CANCER METASTATIC
     Dosage: 138 MG, QD
     Route: 042
     Dates: start: 20110119, end: 20130514

REACTIONS (1)
  - Cataract [Recovered/Resolved]

NARRATIVE: CASE EVENT DATE: 20131108
